FAERS Safety Report 15001198 (Version 1)
Quarter: 2018Q2

REPORT INFORMATION
  Report Type: Spontaneous
  Country: US (occurrence: US)
  Receive Date: 20180612
  Receipt Date: 20180612
  Transmission Date: 20180711
  Serious: Yes (Other)
  Sender: FDA-Public Use
  Company Number: US-BAYER-2018-110371

PATIENT
  Age: 35 Year
  Sex: Female

DRUGS (1)
  1. KYLEENA [Suspect]
     Active Substance: LEVONORGESTREL
     Indication: MENSTRUAL CYCLE MANAGEMENT
     Dosage: 17 MCG/24HR, CONT
     Route: 015
     Dates: start: 2018

REACTIONS (6)
  - Genital haemorrhage [None]
  - Uterine leiomyoma [None]
  - Off label use [None]
  - Dysmenorrhoea [None]
  - Menstruation delayed [None]
  - Product use in unapproved indication [None]
